FAERS Safety Report 21540604 (Version 1)
Quarter: 2022Q4

REPORT INFORMATION
  Report Type: Report from Study
  Country: US (occurrence: US)
  Receive Date: 20221102
  Receipt Date: 20221102
  Transmission Date: 20230113
  Serious: No
  Sender: FDA-Public Use
  Company Number: US-ABBVIE-4138665

PATIENT
  Sex: Male

DRUGS (5)
  1. RINVOQ [Suspect]
     Active Substance: UPADACITINIB
     Indication: Dermatitis atopic
     Dosage: 15 MG, TAKE 1 TABLET BY MOUTH EVERY DAY
     Route: 048
     Dates: start: 20211101, end: 20220630
  2. TADALAFIL [Concomitant]
     Active Substance: TADALAFIL
     Indication: Product used for unknown indication
     Dosage: 20 MG
  3. TRIAMCINOLON [Concomitant]
     Indication: Product used for unknown indication
     Dosage: TRIAMCINOLON POW
  4. HYDROXYZINE [Concomitant]
     Active Substance: HYDROXYZINE HYDROCHLORIDE
     Indication: Product used for unknown indication
     Dosage: 50 MG.
  5. LOSARTAN POTASSIUM [Concomitant]
     Active Substance: LOSARTAN POTASSIUM
     Indication: Product used for unknown indication
     Dosage: 100 MG.

REACTIONS (1)
  - Peripheral swelling [Not Recovered/Not Resolved]
